FAERS Safety Report 24708047 (Version 1)
Quarter: 2024Q4

REPORT INFORMATION
  Report Type: Spontaneous
  Country: DE (occurrence: DE)
  Receive Date: 20241206
  Receipt Date: 20241206
  Transmission Date: 20250114
  Serious: Yes (Hospitalization)
  Sender: BOEHRINGER INGELHEIM
  Company Number: DE-BoehringerIngelheim-2024-BI-066840

PATIENT
  Age: 65 Year
  Sex: Male

DRUGS (18)
  1. EMPAGLIFLOZIN [Suspect]
     Active Substance: EMPAGLIFLOZIN
     Indication: Diabetes mellitus
     Dosage: 1-0-0
     Dates: start: 2017, end: 2020
  2. EMPAGLIFLOZIN [Suspect]
     Active Substance: EMPAGLIFLOZIN
     Dosage: 1-0-0
     Dates: start: 2020
  3. EMPAGLIFLOZIN [Suspect]
     Active Substance: EMPAGLIFLOZIN
     Dosage: 0-0-1
     Dates: start: 202201, end: 202303
  4. EMPAGLIFLOZIN [Suspect]
     Active Substance: EMPAGLIFLOZIN
     Dosage: 0-0-1
     Dates: start: 202303
  5. METFORMIN [Concomitant]
     Active Substance: METFORMIN HYDROCHLORIDE
     Indication: Product used for unknown indication
     Dosage: 1-0-1
     Dates: start: 2017
  6. DULAGLUTIDE [Concomitant]
     Active Substance: DULAGLUTIDE
     Indication: Product used for unknown indication
     Dosage: 1.5 MG WEEKLY
     Dates: start: 2020, end: 202201
  7. DULAGLUTIDE [Concomitant]
     Active Substance: DULAGLUTIDE
     Dosage: 3.0 MG WEEKLY
     Dates: start: 202201, end: 202303
  8. DULAGLUTIDE [Concomitant]
     Active Substance: DULAGLUTIDE
     Dosage: 0.75 - 3.0 MG WEEKLY
     Dates: start: 202303, end: 202401
  9. DULAGLUTIDE [Concomitant]
     Active Substance: DULAGLUTIDE
     Dosage: 3.0 MG WEEKLY
     Dates: start: 202401
  10. INSULIN DEGLUDEC [Concomitant]
     Active Substance: INSULIN DEGLUDEC
     Indication: Product used for unknown indication
     Dates: start: 2020, end: 202103
  11. INSULIN DEGLUDEC [Concomitant]
     Active Substance: INSULIN DEGLUDEC
     Dates: start: 202103, end: 202201
  12. INSULIN DEGLUDEC [Concomitant]
     Active Substance: INSULIN DEGLUDEC
     Dates: start: 202103, end: 202204
  13. INSULIN DEGLUDEC [Concomitant]
     Active Substance: INSULIN DEGLUDEC
     Dates: start: 202204, end: 202303
  14. INSULIN DEGLUDEC [Concomitant]
     Active Substance: INSULIN DEGLUDEC
     Dates: start: 202303, end: 202409
  15. GLIMEPIRIDE [Concomitant]
     Active Substance: GLIMEPIRIDE
     Indication: Product used for unknown indication
     Dosage: 0-0-1
     Dates: start: 202103, end: 202201
  16. GLIMEPIRIDE [Concomitant]
     Active Substance: GLIMEPIRIDE
     Dosage: 0-0-1
     Dates: start: 202201, end: 202409
  17. GLIMEPIRIDE [Concomitant]
     Active Substance: GLIMEPIRIDE
     Dosage: AS NECESSARY
     Dates: start: 202409
  18. Tirzepatid [Concomitant]
     Indication: Product used for unknown indication
     Dosage: 5.0 MG WEEKLY
     Dates: start: 202407

REACTIONS (5)
  - Arrhythmia [Unknown]
  - Coronary artery disease [Unknown]
  - Body mass index increased [Recovered/Resolved]
  - Glycosylated haemoglobin increased [Unknown]
  - Nausea [Unknown]

NARRATIVE: CASE EVENT DATE: 20220101
